FAERS Safety Report 4923955-5 (Version None)
Quarter: 2006Q1

REPORT INFORMATION
  Report Type: 
  Country: None (occurrence: None)
  Receive Date: 20060221
  Receipt Date: 20060209
  Transmission Date: 20060701
  Serious: Yes (Life-Threatening)
  Sender: FDA-Public Use
  Company Number: 222120

PATIENT
  Age: 59 Year
  Sex: Male
  Weight: 63 kg

DRUGS (8)
  1. MABTHERA(RITUXIMAB) CONC FOR SOLUTION FOR INFUSION [Suspect]
     Indication: NON-HODGKIN'S LYMPHOMA
     Dosage: 700 MG, INTRAVENOUS
     Route: 042
     Dates: start: 20001016, end: 20001201
  2. FLUDARA [Suspect]
     Indication: NON-HODGKIN'S LYMPHOMA
     Dosage: 45 MG, INTRAVENOUS; SEE IMAGE
     Route: 042
     Dates: start: 20001016, end: 20010314
  3. NOVANTRONE [Suspect]
     Indication: NON-HODGKIN'S LYMPHOMA
     Dosage: 12 MG, INTRAVENOUS
     Route: 042
     Dates: start: 20001016, end: 20010314
  4. VEPESID [Suspect]
     Indication: NON-HODGKIN'S LYMPHOMA
     Dates: start: 19980815, end: 19980815
  5. ENDOXAN (CYCLOPHOSPHAMIDE) [Suspect]
     Indication: NON-HODGKIN'S LYMPHOMA
     Dosage: INTRAVENOUS
     Route: 042
     Dates: start: 19980515, end: 19980715
  6. DOXORUBICIN HCL [Suspect]
     Indication: NON-HODGKIN'S LYMPHOMA
     Dosage: INTRAVENOUS
     Route: 042
     Dates: start: 19980515, end: 19980715
  7. TAXOTERE [Concomitant]
  8. XELODA [Concomitant]

REACTIONS (3)
  - METASTASES TO PERITONEUM [None]
  - METASTATIC GASTRIC CANCER [None]
  - NON-HODGKIN'S LYMPHOMA RECURRENT [None]
